FAERS Safety Report 4989204-7 (Version None)
Quarter: 2006Q2

REPORT INFORMATION
  Report Type: 
  Country: None (occurrence: None)
  Receive Date: 20060425
  Receipt Date: 20060411
  Transmission Date: 20061013
  Serious: Yes (Hospitalization)
  Sender: FDA-Public Use
  Company Number: GXKR2006US02023

PATIENT
  Age: 47 Year
  Sex: Female

DRUGS (3)
  1. AMITRIPTYLINE (NGX) (AMITRIPTYLINE), 50MG [Suspect]
     Dosage: ORAL
     Route: 048
  2. FLUOXETINE [Suspect]
     Dosage: ORAL
     Route: 048
  3. LORAZEPAM [Suspect]
     Dosage: ORAL
     Route: 048

REACTIONS (10)
  - AREFLEXIA [None]
  - ELECTROCARDIOGRAM QRS COMPLEX SHORTENED [None]
  - HEPATIC FAILURE [None]
  - HYPOTENSION [None]
  - INTENTIONAL OVERDOSE [None]
  - ISCHAEMIC HEPATITIS [None]
  - LOSS OF CONSCIOUSNESS [None]
  - RHABDOMYOLYSIS [None]
  - SINUS BRADYCARDIA [None]
  - TOXICOLOGIC TEST ABNORMAL [None]
